FAERS Safety Report 8658303 (Version 4)
Quarter: 2014Q1

REPORT INFORMATION
  Report Type: Report from Study
  Country: JP (occurrence: JP)
  Receive Date: 20120710
  Receipt Date: 20140102
  Transmission Date: 20141002
  Serious: Yes (Disabling)
  Sender: FDA-Public Use
  Company Number: JP-ROCHE-1082811

PATIENT
  Age: 61 Year
  Sex: Male
  Weight: 63 kg

DRUGS (15)
  1. METHOXY POLYETHYLENE GLYCOL-EPOETIN BETA [Suspect]
     Indication: NEPHROGENIC ANAEMIA
     Route: 042
     Dates: start: 20120528, end: 20120611
  2. PEG-INTERFERON ALFA 2A [Suspect]
     Indication: HEPATITIS C
     Route: 058
     Dates: start: 20111007, end: 20120608
  3. GASMOTIN [Concomitant]
     Route: 048
     Dates: end: 20120613
  4. ITOROL [Concomitant]
     Route: 048
     Dates: end: 20120613
  5. ALFAROL [Concomitant]
     Route: 048
     Dates: end: 20120613
  6. BAYASPIRIN [Concomitant]
     Route: 048
     Dates: start: 201110, end: 20120613
  7. EXFORGE [Concomitant]
     Dosage: DOSAGE IS UNCERTAIN.
     Route: 048
     Dates: end: 20120613
  8. ALOGLIPTIN BENZOATE [Concomitant]
     Dosage: NESINA
     Route: 048
     Dates: end: 20120613
  9. OMEPRAZOLE [Concomitant]
     Route: 048
     Dates: end: 20120613
  10. PURSENNID [Concomitant]
     Route: 048
     Dates: end: 20120613
  11. PURSENNID [Concomitant]
     Route: 048
     Dates: end: 20120613
  12. DOXAZON [Concomitant]
     Route: 048
     Dates: end: 20120613
  13. HEPARIN NA [Concomitant]
     Dosage: WHEN UNCERTAIN DOSAGE IS DIALYZED
     Route: 042
  14. CYSTEINE HYDROCHLORIDE/GLYCINE/LICORICE [Concomitant]
     Route: 042
     Dates: end: 20120613
  15. NEUROTROPIN (JAPAN) [Concomitant]
     Route: 042
     Dates: end: 20120613

REACTIONS (3)
  - Cerebral haemorrhage [Not Recovered/Not Resolved]
  - Blood pressure increased [Unknown]
  - Malaise [Unknown]
